FAERS Safety Report 7248675-6 (Version None)
Quarter: 2011Q1

REPORT INFORMATION
  Report Type: 
  Country: None (occurrence: None)
  Receive Date: 20110128
  Receipt Date: 20110120
  Transmission Date: 20110831
  Serious: Yes (Hospitalization)
  Sender: FDA-Public Use
  Company Number: DE-BIOGENIDEC-2011BI002406

PATIENT
  Age: 29 Year
  Sex: Male
  Weight: 110 kg

DRUGS (1)
  1. TYSABRI [Suspect]
     Indication: MULTIPLE SCLEROSIS
     Dates: start: 20090501, end: 20100901

REACTIONS (8)
  - FAECAL INCONTINENCE [None]
  - MULTIPLE SCLEROSIS RELAPSE [None]
  - WEIGHT INCREASED [None]
  - GAIT DISTURBANCE [None]
  - FALL [None]
  - FOOT FRACTURE [None]
  - VISUAL IMPAIRMENT [None]
  - URINARY INCONTINENCE [None]
